FAERS Safety Report 25476034 (Version 1)
Quarter: 2025Q2

REPORT INFORMATION
  Report Type: Spontaneous
  Country: CA (occurrence: CA)
  Receive Date: 20250625
  Receipt Date: 20250625
  Transmission Date: 20250717
  Serious: Yes (Other)
  Sender: Harrow Health
  Company Number: NVSC2024CA229909

PATIENT
  Age: 65 Year
  Sex: Female

DRUGS (20)
  1. MOXIFLOXACIN HYDROCHLORIDE [Suspect]
     Active Substance: MOXIFLOXACIN HYDROCHLORIDE
     Route: 065
  2. CIPROFLOXACIN [Suspect]
     Active Substance: CIPROFLOXACIN
  3. OMALIZUMAB [Suspect]
     Active Substance: OMALIZUMAB
  4. RISEDRONATE SODIUM [Suspect]
     Active Substance: RISEDRONATE SODIUM
  5. RITUXIMAB [Suspect]
     Active Substance: RITUXIMAB
  6. ROSUVASTATIN CALCIUM [Suspect]
     Active Substance: ROSUVASTATIN CALCIUM
  7. MONTELUKAST SODIUM [Suspect]
     Active Substance: MONTELUKAST SODIUM
  8. ASPIRIN [Suspect]
     Active Substance: ASPIRIN
  9. AMLODIPINE BESYLATE [Suspect]
     Active Substance: AMLODIPINE BESYLATE
  10. BECLOMETHASONE [Suspect]
     Active Substance: BECLOMETHASONE
  11. CALCIUM CARBONATE\CHOLECALCIFEROL [Suspect]
     Active Substance: CALCIUM CARBONATE\CHOLECALCIFEROL
  12. CIPROFLOXACIN HYDROCHLORIDE [Suspect]
     Active Substance: CIPROFLOXACIN HYDROCHLORIDE
  13. CLONAZEPAM [Suspect]
     Active Substance: CLONAZEPAM
  14. ERGOCALCIFEROL [Suspect]
     Active Substance: ERGOCALCIFEROL
  15. FOLIC ACID [Suspect]
     Active Substance: FOLIC ACID
  16. HYDROMORPHONE [Suspect]
     Active Substance: HYDROMORPHONE
  17. PREDNISONE [Suspect]
     Active Substance: PREDNISONE
  18. ROPIVACAINE HYDROCHLORIDE [Suspect]
     Active Substance: ROPIVACAINE HYDROCHLORIDE
  19. THEOPHYLLINE [Suspect]
     Active Substance: THEOPHYLLINE
  20. TRAMADOL HYDROCHLORIDE [Suspect]
     Active Substance: TRAMADOL HYDROCHLORIDE

REACTIONS (7)
  - Drug hypersensitivity [Recovering/Resolving]
  - Asthma [Recovering/Resolving]
  - Dyspnoea [Recovering/Resolving]
  - Oedema [Recovering/Resolving]
  - Pneumonia [Recovering/Resolving]
  - Vomiting [Recovering/Resolving]
  - Wheezing [Recovering/Resolving]
